FAERS Safety Report 8864696 (Version 1)
Quarter: 2012Q4

REPORT INFORMATION
  Report Type: 
  Country: US (occurrence: US)
  Receive Date: 20121024
  Receipt Date: 20121024
  Transmission Date: 20130627
  Serious: No
  Sender: FDA-Public Use
  Company Number: US-AMGEN-USASP2011068984

PATIENT
  Age: 60 Year
  Sex: Male
  Weight: 78.01 kg

DRUGS (1)
  1. ENBREL [Suspect]
     Indication: RHEUMATOID ARTHRITIS
     Dosage: 50 mg, qwk
     Route: 058

REACTIONS (4)
  - Arthralgia [Unknown]
  - Musculoskeletal pain [Unknown]
  - Renal disorder [Unknown]
  - Injection site pain [Unknown]
